FAERS Safety Report 5240630-0 (Version None)
Quarter: 2007Q1

REPORT INFORMATION
  Report Type: 
  Country: None (occurrence: None)
  Receive Date: 20070219
  Receipt Date: 20070208
  Transmission Date: 20070707
  Serious: Yes (Hospitalization)
  Sender: FDA-Public Use
  Company Number: TH-MERCK-0702USA01497

PATIENT
  Age: 26 Year
  Sex: Female

DRUGS (14)
  1. URECHOLINE [Suspect]
     Route: 065
  2. HALOPERIDOL [Suspect]
     Indication: DELUSION
     Route: 042
  3. HALOPERIDOL [Suspect]
     Indication: TEARFULNESS
     Route: 042
  4. DIAZEPAM [Suspect]
     Indication: DELUSION
     Route: 042
  5. DIAZEPAM [Suspect]
     Route: 065
  6. DIAZEPAM [Suspect]
     Indication: TEARFULNESS
     Route: 042
  7. DIAZEPAM [Suspect]
     Route: 065
  8. FLUOXETINE [Concomitant]
     Route: 065
  9. IMIPRAMINE HYDROCHLORIDE [Concomitant]
     Route: 065
  10. LORAZEPAM [Suspect]
     Route: 065
  11. QUETIAPINE FUMARATE [Concomitant]
     Route: 065
  12. BROMOCRIPTINE [Concomitant]
     Route: 065
  13. CARBAMAZEPINE [Concomitant]
     Route: 065
  14. TIANEPTINE [Concomitant]
     Route: 065

REACTIONS (1)
  - NEUROLEPTIC MALIGNANT SYNDROME [None]
